FAERS Safety Report 5393762-0 (Version None)
Quarter: 2007Q3

REPORT INFORMATION
  Report Type: 
  Country: None (occurrence: None)
  Receive Date: 20070723
  Receipt Date: 20070717
  Transmission Date: 20080115
  Serious: Yes (Death)
  Sender: FDA-Public Use
  Company Number: JP-JNJFOC-20070703615

PATIENT
  Sex: Male

DRUGS (2)
  1. DIPHENHYDRAMINE HCL [Suspect]
     Indication: SUICIDE ATTEMPT
     Dosage: UNKNOWN
     Route: 048
  2. CARBON MONOXIDE [Suspect]
     Indication: SUICIDE ATTEMPT

REACTIONS (2)
  - CARBON MONOXIDE POISONING [None]
  - COMPLETED SUICIDE [None]
